FAERS Safety Report 5792364-1 (Version None)
Quarter: 2008Q2

REPORT INFORMATION
  Report Type: 
  Country: None (occurrence: None)
  Receive Date: 20080625
  Receipt Date: 20080305
  Transmission Date: 20081010
  Serious: Yes (Other)
  Sender: FDA-Public Use
  Company Number: US-WYE-H02972108

PATIENT
  Age: 50 Year
  Sex: Female
  Weight: 99.43 kg

DRUGS (2)
  1. TORISEL [Suspect]
     Indication: RENAL CELL CARCINOMA
     Dosage: DOSE REDUCED, INTRAVENOUS ; 25 MG 1X PER 1 WK, INTRAVENOUS
     Route: 042
     Dates: start: 20080122, end: 20080129
  2. TORISEL [Suspect]
     Indication: RENAL CELL CARCINOMA
     Dosage: DOSE REDUCED, INTRAVENOUS ; 25 MG 1X PER 1 WK, INTRAVENOUS
     Route: 042
     Dates: start: 20080201

REACTIONS (1)
  - BLISTER [None]
